FAERS Safety Report 19030941 (Version 1)
Quarter: 2021Q1

REPORT INFORMATION
  Report Type: Spontaneous
  Country: US (occurrence: US)
  Receive Date: 20210319
  Receipt Date: 20210319
  Transmission Date: 20210420
  Serious: No
  Sender: FDA-Public Use
  Company Number: None

PATIENT
  Age: 46 Year
  Sex: Female
  Weight: 85.95 kg

DRUGS (7)
  1. DIVALPROEX ER [Concomitant]
     Active Substance: DIVALPROEX SODIUM
     Dates: start: 20201230
  2. HYDRALAZINE [Concomitant]
     Active Substance: HYDRALAZINE HYDROCHLORIDE
     Dates: start: 20201218
  3. ZIPRASIDONE. [Concomitant]
     Active Substance: ZIPRASIDONE
     Dates: start: 20201218
  4. ENALAPRIL [Suspect]
     Active Substance: ENALAPRIL
  5. ENALAPRIL [Concomitant]
     Active Substance: ENALAPRIL
     Dates: start: 20200719, end: 20210202
  6. POTASSIUM CHLORIDE. [Concomitant]
     Active Substance: POTASSIUM CHLORIDE
     Dates: start: 20201218
  7. AMLODIPINE [Suspect]
     Active Substance: AMLODIPINE BESYLATE
     Indication: HYPERTENSION
     Route: 048
     Dates: start: 20200610, end: 20210203

REACTIONS (5)
  - Gingival hypertrophy [None]
  - Psychotic disorder [None]
  - Affective disorder [None]
  - Blood pressure increased [None]
  - Somnolence [None]

NARRATIVE: CASE EVENT DATE: 20210126
